APPROVED DRUG PRODUCT: PROSTIN VR PEDIATRIC
Active Ingredient: ALPROSTADIL
Strength: 0.5MG/ML
Dosage Form/Route: INJECTABLE;INJECTION
Application: N018484 | Product #001 | TE Code: AP
Applicant: PFIZER INC
Approved: Approved Prior to Jan 1, 1982 | RLD: Yes | RS: Yes | Type: RX